FAERS Safety Report 8553629-3 (Version None)
Quarter: 2012Q3

REPORT INFORMATION
  Report Type: 
  Country: None (occurrence: None)
  Receive Date: 20120731
  Receipt Date: 20120726
  Transmission Date: 20120928
  Serious: Yes (Other)
  Sender: FDA-Public Use
  Company Number: PHHY2012RU064488

PATIENT
  Age: 66 Year
  Sex: Female

DRUGS (1)
  1. FOROZA [Suspect]
     Indication: OSTEOPOROSIS
     Dosage: 70 MG, UNK
     Route: 048
     Dates: start: 20120714, end: 20120724

REACTIONS (2)
  - PANCREATITIS ACUTE [None]
  - INCORRECT DOSE ADMINISTERED [None]
